FAERS Safety Report 8687423 (Version 2)
Quarter: 2012Q4

REPORT INFORMATION
  Report Type: 
  Country: US (occurrence: US)
  Receive Date: 20120727
  Receipt Date: 20121115
  Transmission Date: 20130627
  Serious: Yes (Other)
  Sender: FDA-Public Use
  Company Number: US-PFIZER INC-2012178102

PATIENT
  Sex: Male

DRUGS (4)
  1. LYRICA [Suspect]
     Indication: PAIN IN CALF
     Dosage: 50 mg, 2x/day
     Route: 048
     Dates: start: 201204
  2. LYRICA [Suspect]
     Indication: PAIN IN ANKLE
  3. LYRICA [Suspect]
     Indication: PAIN IN FOOT
  4. ADDERALL [Concomitant]
     Dosage: UNK

REACTIONS (4)
  - Vascular rupture [Not Recovered/Not Resolved]
  - Contusion [Not Recovered/Not Resolved]
  - Skin disorder [Not Recovered/Not Resolved]
  - Skin lesion [Not Recovered/Not Resolved]
